FAERS Safety Report 17316443 (Version 1)
Quarter: 2020Q1

REPORT INFORMATION
  Report Type: Report from Study
  Country: TR (occurrence: TR)
  Receive Date: 20200124
  Receipt Date: 20200124
  Transmission Date: 20200409
  Serious: Yes (Hospitalization)
  Sender: FDA-Public Use
  Company Number: PHHO2017TR014640

PATIENT
  Age: 28 Year
  Sex: Male
  Weight: 62 kg

DRUGS (2)
  1. OFATUMUMAB [Suspect]
     Active Substance: OFATUMUMAB
     Indication: RELAPSING MULTIPLE SCLEROSIS
     Dosage: 20 MG
     Route: 058
     Dates: start: 20171018
  2. PLACEBO [Suspect]
     Active Substance: UNSPECIFIED INGREDIENT
     Indication: RELAPSING MULTIPLE SCLEROSIS
     Dosage: UNK
     Route: 048
     Dates: start: 20171018

REACTIONS (1)
  - Injection related reaction [Recovered/Resolved]

NARRATIVE: CASE EVENT DATE: 20171018
